FAERS Safety Report 15942066 (Version 1)
Quarter: 2019Q1

REPORT INFORMATION
  Report Type: Spontaneous
  Country: US (occurrence: US)
  Receive Date: 20190211
  Receipt Date: 20190211
  Transmission Date: 20190417
  Serious: Yes (Hospitalization)
  Sender: FDA-Public Use
  Company Number: None

PATIENT
  Age: 11 Year
  Sex: Female

DRUGS (2)
  1. XATMEP [Suspect]
     Active Substance: METHOTREXATE
     Indication: ACUTE LYMPHOCYTIC LEUKAEMIA
     Dosage: ?          OTHER FREQUENCY:EVERY 7 DAYS;OTHER ROUTE:NASOGASTRIC TUBE?
     Dates: start: 20180517
  2. ENOXAPARIN INJ 40/0.4ML [Concomitant]

REACTIONS (4)
  - Condition aggravated [None]
  - Therapy cessation [None]
  - Septic shock [None]
  - Pancreatitis [None]

NARRATIVE: CASE EVENT DATE: 20181123
